FAERS Safety Report 7382066-2 (Version None)
Quarter: 2011Q1

REPORT INFORMATION
  Report Type: 
  Country: None (occurrence: None)
  Receive Date: 20110329
  Receipt Date: 20110316
  Transmission Date: 20110831
  Serious: Yes (Hospitalization)
  Sender: FDA-Public Use
  Company Number: US-ELI_LILLY_AND_COMPANY-US201006001768

PATIENT
  Sex: Female

DRUGS (15)
  1. IRON [Concomitant]
  2. METHOTREXATE [Concomitant]
     Dosage: 2.5 MG, ONE PILL IN THE MORNING AND ONE IN THE EVENING ONLY ON WEDNESDAYS
     Route: 065
  3. CELEBREX [Concomitant]
     Dosage: 200 MG, EACH EVENING
     Route: 065
  4. OSCAL /00108001/ [Concomitant]
     Dosage: 500 MG, BID
     Route: 065
  5. LOVASTATIN [Concomitant]
     Dosage: 20 MG, EACH EVENING
     Route: 065
  6. FORTEO [Suspect]
     Indication: OSTEOPOROSIS
     Dosage: 20 UG, DAILY (1/D)
     Dates: start: 20090409
  7. ASPIRIN [Concomitant]
     Route: 065
  8. STOOL SOFTENER [Concomitant]
     Route: 065
  9. VISINE-A [Concomitant]
     Indication: EYE PAIN
     Dosage: UNK, AS NEEDED
     Route: 065
  10. FORTEO [Suspect]
     Dosage: 20 UG, QD
     Route: 065
  11. ZYRTEC [Concomitant]
     Dosage: UNK, AS NEEDED (24 HOURS RELIEF)
     Route: 065
  12. FOLIC ACID [Concomitant]
     Dosage: 1 MG, BID
     Route: 065
  13. ATENOLOL [Concomitant]
     Dosage: 50 MG, BID
     Route: 065
  14. FLUTICASONE PROPIONATE [Concomitant]
     Dosage: UNK, AS NEEDED (ONE SQUIRT PER NOSTRIL)
  15. CENTRUM SILVER [Concomitant]
     Route: 065

REACTIONS (7)
  - FEELING ABNORMAL [None]
  - OEDEMA PERIPHERAL [None]
  - JOINT RANGE OF MOTION DECREASED [None]
  - VEIN DISORDER [None]
  - PAIN IN EXTREMITY [None]
  - ARTHRALGIA [None]
  - BACK PAIN [None]
